FAERS Safety Report 16262602 (Version 4)
Quarter: 2020Q1

REPORT INFORMATION
  Report Type: Report from Study
  Country: US (occurrence: US)
  Receive Date: 20190502
  Receipt Date: 20200323
  Transmission Date: 20200409
  Serious: Yes (Hospitalization, Other)
  Sender: FDA-Public Use
  Company Number: US-TAKEDA-2019TUS026234

PATIENT
  Sex: Female

DRUGS (2)
  1. IXAZOMIB [Suspect]
     Active Substance: IXAZOMIB
     Indication: AMYLOIDOSIS
     Dosage: 3 MILLIGRAM
     Route: 048
  2. IXAZOMIB [Suspect]
     Active Substance: IXAZOMIB
     Dosage: 2.3 MILLIGRAM
     Route: 048

REACTIONS (5)
  - Malaise [Unknown]
  - Off label use [Unknown]
  - Platelet count decreased [Unknown]
  - Inappropriate schedule of product administration [Unknown]
  - Upper limb fracture [Unknown]
